FAERS Safety Report 5339069-9 (Version None)
Quarter: 2007Q2

REPORT INFORMATION
  Report Type: 
  Country: None (occurrence: None)
  Receive Date: 20070530
  Receipt Date: 20070518
  Transmission Date: 20071010
  Serious: Yes (Other)
  Sender: FDA-Public Use
  Company Number: US-PFIZER INC-2007040623

PATIENT
  Sex: Female

DRUGS (6)
  1. CADUET [Suspect]
     Dosage: TEXT:10 MG/10 MG
  2. LIPITOR [Suspect]
  3. ASPIRIN [Concomitant]
  4. PREMARIN [Concomitant]
  5. LISINOPRIL [Concomitant]
  6. ZETIA [Concomitant]

REACTIONS (3)
  - DRUG EFFECT DECREASED [None]
  - JOINT SWELLING [None]
  - NECK MASS [None]
